FAERS Safety Report 4939396-0 (Version None)
Quarter: 2006Q1

REPORT INFORMATION
  Report Type: 
  Country: None (occurrence: None)
  Receive Date: 20060306
  Receipt Date: 20060220
  Transmission Date: 20060701
  Serious: No
  Sender: FDA-Public Use
  Company Number: DE200512004138

PATIENT
  Age: 25 Year
  Sex: Male

DRUGS (4)
  1. ZYPREXA [Suspect]
     Indication: SCHIZOPHRENIA, PARANOID TYPE
     Dosage: 12.5 MG, ORAL
     Route: 048
     Dates: start: 20051111
  2. JATROSOM (TRANYLCYPROMINE SULFATE, TRIFLUOPERAZINE HYDROCHLORIDE) [Concomitant]
  3. ZELDOX /GFR/ (ZIPRASIDONE MESILATE) [Concomitant]
  4. AKINETON /AUS/ (BIPERIDEN HYDROCHLORIDE) [Concomitant]

REACTIONS (6)
  - CONDITION AGGRAVATED [None]
  - EOSINOPHILIA [None]
  - MULTIPLE SCLEROSIS [None]
  - PSORIASIS [None]
  - UNEVALUABLE EVENT [None]
  - VASCULITIS [None]
